FAERS Safety Report 7100133-5 (Version None)
Quarter: 2010Q4

REPORT INFORMATION
  Report Type: 
  Country: None (occurrence: None)
  Receive Date: 20101112
  Receipt Date: 20100412
  Transmission Date: 20110411
  Serious: No
  Sender: FDA-Public Use
  Company Number: A0854625A

PATIENT
  Sex: Female

DRUGS (2)
  1. COREG [Suspect]
     Dosage: 1TAB PER DAY
     Route: 048
     Dates: start: 20100409
  2. PLAVIX [Concomitant]

REACTIONS (1)
  - DIARRHOEA [None]
